FAERS Safety Report 7007889-0 (Version None)
Quarter: 2010Q3

REPORT INFORMATION
  Report Type: 
  Country: None (occurrence: None)
  Receive Date: 20100922
  Receipt Date: 20100916
  Transmission Date: 20110219
  Serious: Yes (Death, Hospitalization, Other)
  Sender: FDA-Public Use
  Company Number: US-BAYER-201030893NA

PATIENT
  Age: 57 Year
  Sex: Female
  Weight: 56 kg

DRUGS (15)
  1. CIPRO [Suspect]
     Indication: PNEUMONIA
     Dosage: TOTAL DAILY DOSE: 1000 MG  UNIT DOSE: 500 MG
     Route: 048
     Dates: start: 20100208, end: 20100218
  2. SUNITINIB MALATE [Suspect]
     Indication: METASTATIC RENAL CELL CARCINOMA
     Dosage: TOTAL DAILY DOSE: 37.5 MG  UNIT DOSE: 37.5 MG
     Dates: start: 20090303, end: 20090504
  3. SUNITINIB MALATE [Suspect]
     Dosage: UNIT DOSE: 37.5 MG
     Dates: start: 20090604, end: 20090915
  4. SUNITINIB MALATE [Suspect]
     Dosage: UNIT DOSE: 37.5 MG
     Dates: start: 20091008, end: 20100218
  5. LISINOPRIL [Concomitant]
  6. OXYCONTIN [Concomitant]
  7. FERROUS SULFATE [Concomitant]
  8. OXYCODONE HCL [Concomitant]
  9. DURAGESIC-100 [Concomitant]
  10. ADVAIR DISKUS 100/50 [Concomitant]
  11. SPIRIVA [Concomitant]
  12. LORATADINE [Concomitant]
  13. METFORMIN [Concomitant]
  14. RANITIDINE [Concomitant]
  15. GLIPIZIDE [Concomitant]

REACTIONS (2)
  - RENAL CELL CARCINOMA [None]
  - RENAL FAILURE ACUTE [None]
